FAERS Safety Report 6031056-0 (Version None)
Quarter: 2008Q4

REPORT INFORMATION
  Report Type: 
  Country: None (occurrence: None)
  Receive Date: 20081222
  Receipt Date: 20081015
  Transmission Date: 20090506
  Serious: No
  Sender: FDA-Public Use
  Company Number: ALL1-2008-02941

PATIENT
  Age: 34 Year
  Sex: Female
  Weight: 59 kg

DRUGS (7)
  1. VYVANSE [Suspect]
     Indication: ATTENTION DEFICIT/HYPERACTIVITY DISORDER
     Dosage: 30 MG, 1X/DAY:QD, ORAL
     Route: 048
     Dates: start: 20080929
  2. EFFEXOR XR [Concomitant]
  3. LAMICTAL [Concomitant]
  4. BUSPAR [Concomitant]
  5. ZANAFLEX [Concomitant]
  6. ESGIC-PLUS (BUTALBITAL, CAFFEINE, PARACETAMOL) [Concomitant]
  7. MICROGESTIN (ETHINYLESTRADIOL, NORETHISTERONE ACETATE) [Concomitant]

REACTIONS (7)
  - ABDOMINAL DISCOMFORT [None]
  - DRUG EFFECT DECREASED [None]
  - HEART RATE INCREASED [None]
  - INCREASED APPETITE [None]
  - INSOMNIA [None]
  - LETHARGY [None]
  - SOMNOLENCE [None]
